FAERS Safety Report 18188238 (Version 3)
Quarter: 2020Q4

REPORT INFORMATION
  Report Type: Report from Study
  Country: US (occurrence: TZ)
  Receive Date: 20200824
  Receipt Date: 20201027
  Transmission Date: 20210113
  Serious: Yes (Death, Other)
  Sender: FDA-Public Use
  Company Number: TZ-SHIRE-TZ202019054

PATIENT

DRUGS (1)
  1. VPRIV [Suspect]
     Active Substance: VELAGLUCERASE ALFA
     Indication: GAUCHER^S DISEASE
     Dosage: 400 UNK, 1X/2WKS
     Route: 042
     Dates: start: 20190624

REACTIONS (2)
  - Inappropriate schedule of product administration [Unknown]
  - Pneumonia [Fatal]
